FAERS Safety Report 20984214 (Version 1)
Quarter: 2022Q2

REPORT INFORMATION
  Report Type: Report from Study
  Country: FR (occurrence: FR)
  Receive Date: 20220621
  Receipt Date: 20220621
  Transmission Date: 20220720
  Serious: Yes (Disabling)
  Sender: FDA-Public Use
  Company Number: FR-Medice Arzneimittel-ATTNPP-202200024

PATIENT
  Age: 23 Year
  Sex: Female

DRUGS (5)
  1. REMICADE [Suspect]
     Active Substance: INFLIXIMAB
     Indication: Ankylosing spondylitis
     Route: 041
     Dates: start: 202107, end: 202201
  2. REMICADE [Suspect]
     Active Substance: INFLIXIMAB
     Route: 041
     Dates: start: 2022
  3. DEXTROAMPHETAMINE [Suspect]
     Active Substance: DEXTROAMPHETAMINE
     Indication: Hypersomnia
     Dosage: 30 MG EVERY 24 HOURS
     Route: 065
     Dates: start: 202107, end: 202201
  4. DEXTROAMPHETAMINE [Suspect]
     Active Substance: DEXTROAMPHETAMINE
     Dosage: 10 MG EVERY 24 HOUR
     Route: 048
     Dates: start: 20210118
  5. MELATONIN [Concomitant]
     Active Substance: MELATONIN
     Indication: Circadian rhythm sleep disorder
     Route: 065
     Dates: start: 20200110, end: 202107

REACTIONS (7)
  - Crying [Recovered/Resolved]
  - Attention deficit hyperactivity disorder [Recovered/Resolved]
  - Depression [Recovered/Resolved]
  - Depressed mood [Recovered/Resolved]
  - Anhedonia [Recovered/Resolved]
  - Somnolence [Recovered/Resolved]
  - Fatigue [Recovered/Resolved]

NARRATIVE: CASE EVENT DATE: 20220101
